FAERS Safety Report 12083936 (Version 2)
Quarter: 2016Q1

REPORT INFORMATION
  Report Type: Report from Study
  Country: CA (occurrence: CA)
  Receive Date: 20160217
  Receipt Date: 20160307
  Transmission Date: 20160526
  Serious: Yes (Other)
  Sender: FDA-Public Use
  Company Number: CA-CELGENE-CAN-2016021343

PATIENT
  Age: 79 Year
  Sex: Female
  Weight: 66.4 kg

DRUGS (52)
  1. TRAMCET [Concomitant]
     Active Substance: ACETAMINOPHEN\TRAMADOL
     Dosage: 1200 MILLIGRAM
     Route: 048
     Dates: start: 20090925, end: 20091002
  2. GARLIC. [Concomitant]
     Active Substance: GARLIC
     Indication: SUPPLEMENTATION THERAPY
     Route: 048
     Dates: start: 1996
  3. VITAMIN B12 [Concomitant]
     Active Substance: CYANOCOBALAMIN
     Indication: SUPPLEMENTATION THERAPY
     Route: 048
     Dates: start: 1999
  4. CLARITHROMYCIN. [Concomitant]
     Active Substance: CLARITHROMYCIN
     Indication: SINUSITIS
     Route: 048
     Dates: start: 20100126, end: 20100208
  5. BLINK MOISTURIZING EYE DROPS [Concomitant]
     Indication: EYE IRRITATION
     Route: 047
     Dates: start: 20110103, end: 20110215
  6. MELATONIN [Concomitant]
     Active Substance: MELATONIN
     Indication: PROPHYLAXIS
     Route: 048
     Dates: start: 20110315, end: 20110316
  7. SENNA/DOCUSATE [Concomitant]
     Indication: CONSTIPATION
     Dosage: 8.6/50
     Route: 048
     Dates: start: 20091023, end: 20091026
  8. REVLIMID [Suspect]
     Active Substance: LENALIDOMIDE
     Indication: PLASMA CELL MYELOMA
     Dosage: 1 TABLET
     Route: 048
     Dates: start: 20130920, end: 20131119
  9. VITAMIN C [Concomitant]
     Active Substance: ASCORBIC ACID
     Indication: SUPPLEMENTATION THERAPY
     Route: 048
     Dates: start: 1989
  10. STERI SOL [Concomitant]
     Indication: ORAL PAIN
     Dosage: 5-10ML
     Route: 065
     Dates: start: 20100423, end: 20100930
  11. SULFATRIM [Concomitant]
     Active Substance: SULFAMETHOXAZOLE\TRIMETHOPRIM
     Indication: URINARY TRACT INFECTION
     Dosage: 800/60MG
     Route: 048
     Dates: start: 20100712, end: 20100728
  12. CLEAR EYES [Concomitant]
     Active Substance: NAPHAZOLINE HYDROCHLORIDE
     Indication: EYE PAIN
     Route: 047
     Dates: start: 20100825, end: 20100905
  13. GRAVOL [Concomitant]
     Active Substance: DIMENHYDRINATE
     Indication: EUSTACHIAN TUBE OBSTRUCTION
     Dosage: 200 MILLIGRAM
     Route: 048
     Dates: start: 20100928
  14. ANUZONA [Concomitant]
     Indication: HAEMORRHOIDS
     Route: 061
     Dates: start: 20110315, end: 20110419
  15. PAMIDRONATE [Concomitant]
     Active Substance: PAMIDRONATE DISODIUM
     Indication: BONE DISORDER
     Route: 041
     Dates: start: 2004
  16. TYLENOL WITH CODEINE [Concomitant]
     Active Substance: ACETAMINOPHEN\CODEINE PHOSPHATE
     Indication: BACK PAIN
     Dosage: 300-30MG
     Route: 048
     Dates: start: 20090812, end: 20090825
  17. TYLENOL WITH CODEINE AND CAFFEINE [Concomitant]
     Indication: BACK PAIN
     Dosage: 300-8-15MG
     Route: 048
     Dates: start: 20090825, end: 20090914
  18. INFLUENZA VACCINE [Concomitant]
     Active Substance: INFLUENZA VIRUS VACCINE
     Indication: ANTIVIRAL PROPHYLAXIS
     Dosage: 1.5 TABLESPOON
     Route: 030
     Dates: start: 20091105, end: 20091105
  19. FERROUS GLUCONATE [Concomitant]
     Active Substance: FERROUS GLUCONATE
     Route: 048
     Dates: start: 20150401, end: 20150412
  20. ISOPTO [Concomitant]
     Indication: DRY EYE
     Dosage: 1 DROPS
     Route: 047
     Dates: start: 20150528
  21. THALOMID [Suspect]
     Active Substance: THALIDOMIDE
     Indication: PLASMA CELL MYELOMA
     Dosage: 200 MILLIGRAM
     Route: 048
     Dates: start: 20090903, end: 20110224
  22. TRAMCET [Concomitant]
     Active Substance: ACETAMINOPHEN\TRAMADOL
     Indication: BACK PAIN
     Dosage: 135 MILLIGRAM
     Route: 048
     Dates: start: 20090914, end: 20090924
  23. FOLIC ACID. [Concomitant]
     Active Substance: FOLIC ACID
     Indication: SUPPLEMENTATION THERAPY
     Route: 048
     Dates: start: 2004
  24. METAMUCIL [Concomitant]
     Active Substance: PLANTAGO SEED
     Indication: DIVERTICULUM
     Route: 048
     Dates: start: 2004
  25. TUMS [Concomitant]
     Active Substance: CALCIUM CARBONATE
     Indication: NAUSEA
     Dosage: 90 MILLIGRAM
     Route: 048
     Dates: start: 20091002, end: 20091002
  26. ORAL BALANCE [Concomitant]
     Dosage: 1/2 LENGTH
     Route: 061
     Dates: start: 20100319, end: 20100930
  27. CLARITHROMYCIN. [Concomitant]
     Active Substance: CLARITHROMYCIN
     Route: 048
     Dates: start: 20100303, end: 20100312
  28. NASONEX [Concomitant]
     Active Substance: MOMETASONE FUROATE
     Route: 065
     Dates: start: 20100928, end: 20110213
  29. FERROUS GLUCONATE [Concomitant]
     Active Substance: FERROUS GLUCONATE
     Dosage: 500 MILLIGRAM
     Route: 048
     Dates: start: 20150418, end: 20150529
  30. NASONEX [Concomitant]
     Active Substance: MOMETASONE FUROATE
     Indication: EUSTACHIAN TUBE OBSTRUCTION
     Route: 065
     Dates: start: 20100928, end: 20110213
  31. SULFAMETHOXAZOLE-TRIMETHOPRIM (SMZ) [Concomitant]
     Active Substance: SULFAMETHOXAZOLE\TRIMETHOPRIM
     Indication: URINARY TRACT INFECTION
     Route: 048
     Dates: start: 20100623, end: 20100630
  32. POLYSPORIN [Concomitant]
     Active Substance: BACITRACIN ZINC\POLYMYXIN B SULFATE
     Indication: EAR DISCOMFORT
     Route: 061
     Dates: start: 20100825, end: 20100905
  33. FERROUS GLUCONATE [Concomitant]
     Active Substance: FERROUS GLUCONATE
     Indication: IRON DEFICIENCY
     Route: 048
     Dates: start: 20150320, end: 20150331
  34. FERROUS GLUCONATE [Concomitant]
     Active Substance: FERROUS GLUCONATE
     Dosage: 1300 MILLIGRAM
     Route: 048
     Dates: start: 20150528, end: 20150810
  35. PREDNISONE. [Suspect]
     Active Substance: PREDNISONE
     Indication: PLASMA CELL MYELOMA
     Dosage: 8 MILLIGRAM
     Route: 065
     Dates: start: 20090930, end: 20110224
  36. SYNTHROID [Concomitant]
     Active Substance: LEVOTHYROXINE SODIUM
     Indication: HYPOTHYROIDISM
     Route: 048
     Dates: start: 1996
  37. MOTRIN [Concomitant]
     Active Substance: IBUPROFEN
     Indication: BACK PAIN
     Route: 048
     Dates: start: 20090825, end: 20090914
  38. TRAMADOL HYDROCHLORIDE. [Concomitant]
     Active Substance: TRAMADOL HYDROCHLORIDE
     Indication: BACK PAIN
     Dosage: 1 MILLIGRAM
     Route: 048
     Dates: start: 20091003, end: 20091231
  39. ACETYLSALICYLIC ACID [Concomitant]
     Active Substance: ASPIRIN
     Indication: THROMBOSIS PROPHYLAXIS
     Route: 048
     Dates: start: 20090930
  40. REFRESH TEARS [Concomitant]
     Active Substance: CARBOXYMETHYLCELLULOSE SODIUM
     Indication: EYE IRRITATION
     Dosage: 25 MILLIGRAM
     Route: 047
     Dates: start: 20110103, end: 20110215
  41. FERROUS GLUCONATE [Concomitant]
     Active Substance: FERROUS GLUCONATE
     Route: 048
     Dates: start: 20150413, end: 20150417
  42. SENNOKOT [Concomitant]
     Indication: CONSTIPATION
     Route: 048
     Dates: start: 20150417, end: 20150417
  43. TYLENOL [Concomitant]
     Active Substance: ACETAMINOPHEN
     Indication: PAIN
     Dosage: 1 DOSAGE FORMS
     Route: 048
     Dates: start: 20150530, end: 20150612
  44. NITROGEN. [Concomitant]
     Active Substance: NITROGEN
     Indication: SKIN LESION
     Route: 061
     Dates: start: 20150120, end: 20150120
  45. NITROGEN. [Concomitant]
     Active Substance: NITROGEN
     Route: 061
     Dates: start: 20150128, end: 20150128
  46. MELPHALAN [Suspect]
     Active Substance: MELPHALAN
     Indication: PLASMA CELL MYELOMA
     Route: 065
     Dates: start: 20090930, end: 20110224
  47. VITAMIN C [Concomitant]
     Active Substance: ASCORBIC ACID
     Route: 048
     Dates: start: 20150413
  48. CLEAR EYES [Concomitant]
     Active Substance: NAPHAZOLINE HYDROCHLORIDE
     Indication: EYE IRRITATION
     Route: 047
     Dates: start: 20101017
  49. ORAL BALANCE [Concomitant]
     Indication: DRY MOUTH
     Dosage: 300 MILLIGRAM
     Route: 061
     Dates: start: 20091223
  50. SUDAFED [Concomitant]
     Active Substance: PSEUDOEPHEDRINE HYDROCHLORIDE
     Indication: NASAL CONGESTION
     Route: 048
     Dates: start: 20100420, end: 20100423
  51. HYDROCORTISONE. [Concomitant]
     Active Substance: HYDROCORTISONE
     Indication: PRURITUS
     Route: 061
     Dates: start: 20150308, end: 20150407
  52. CALCIUM [Concomitant]
     Active Substance: CALCIUM
     Indication: SUPPLEMENTATION THERAPY
     Route: 048
     Dates: start: 20150313

REACTIONS (1)
  - Adenocarcinoma of colon [Recovered/Resolved]

NARRATIVE: CASE EVENT DATE: 20150415
